FAERS Safety Report 5003188-7 (Version None)
Quarter: 2006Q2

REPORT INFORMATION
  Report Type: 
  Country: None (occurrence: None)
  Receive Date: 20060510
  Receipt Date: 20060502
  Transmission Date: 20061013
  Serious: Yes (Hospitalization, Other)
  Sender: FDA-Public Use
  Company Number: 200611693GDS

PATIENT
  Age: 64 Year
  Sex: Male
  Weight: 82 kg

DRUGS (16)
  1. SORAFENIB [Suspect]
     Indication: RENAL CELL CARCINOMA STAGE UNSPECIFIED
     Dosage: 400 MG, BID, ORAL
     Route: 048
     Dates: start: 20050620, end: 20050816
  2. SORAFENIB [Suspect]
     Indication: RENAL CELL CARCINOMA STAGE UNSPECIFIED
     Dosage: 400 MG, BID, ORAL
     Route: 048
     Dates: start: 20050817, end: 20051018
  3. SORAFENIB [Suspect]
     Indication: RENAL CELL CARCINOMA STAGE UNSPECIFIED
     Dosage: 400 MG, BID, ORAL
     Route: 048
     Dates: start: 20051019, end: 20051213
  4. SORAFENIB [Suspect]
     Indication: RENAL CELL CARCINOMA STAGE UNSPECIFIED
     Dosage: 400 MG, BID, ORAL
     Route: 048
     Dates: start: 20051214, end: 20060214
  5. SORAFENIB [Suspect]
     Indication: RENAL CELL CARCINOMA STAGE UNSPECIFIED
     Dosage: 400 MG, BID, ORAL
     Route: 048
     Dates: start: 20060215
  6. SORAFENIB [Suspect]
  7. SORAFENIB [Suspect]
  8. SORAFENIB [Suspect]
  9. BISOCARD [Concomitant]
  10. BLOCARD [Concomitant]
  11. ZOCOR [Concomitant]
  12. GENSULIN [Concomitant]
  13. AMLOPIN [Concomitant]
  14. KREON [Concomitant]
  15. EUTHYROX [Concomitant]
  16. LOPERAMIDE [Concomitant]

REACTIONS (3)
  - DIARRHOEA [None]
  - HYPOCALCAEMIA [None]
  - HYPOTHYROIDISM [None]
